FAERS Safety Report 8392373-2 (Version None)
Quarter: 2012Q2

REPORT INFORMATION
  Report Type: 
  Country: None (occurrence: None)
  Receive Date: 20120529
  Receipt Date: 20120524
  Transmission Date: 20120825
  Serious: Yes (Death)
  Sender: FDA-Public Use
  Company Number: US-ACTELION-A-NJ2012-65767

PATIENT

DRUGS (5)
  1. LETAIRIS [Concomitant]
  2. ASPIRIN [Concomitant]
  3. VENTAVIS [Suspect]
     Indication: PULMONARY ARTERIAL HYPERTENSION
     Dosage: 2.5 ?G, UNK
     Route: 055
     Dates: start: 20120423, end: 20120523
  4. ADCIRCA [Concomitant]
  5. OXYGEN [Concomitant]

REACTIONS (2)
  - BLOOD PRESSURE DECREASED [None]
  - DEATH [None]
